FAERS Safety Report 6908175-7 (Version None)
Quarter: 2010Q3

REPORT INFORMATION
  Report Type: 
  Country: None (occurrence: None)
  Receive Date: 20100708
  Receipt Date: 20090527
  Transmission Date: 20110219
  Serious: Yes (Other)
  Sender: FDA-Public Use
  Company Number: 2009150693

PATIENT
  Age: 59 Year
  Sex: Male
  Weight: 66.4 kg

DRUGS (2)
  1. CHANTIX [Suspect]
     Indication: SMOKING CESSATION THERAPY
     Dosage: 1 MG, 2X/DAY, ORAL
     Route: 048
     Dates: start: 20071022, end: 20071201
  2. ST. JOHN'S WORT (HYPERICUM PERFORATUM) [Concomitant]

REACTIONS (1)
  - SUICIDAL IDEATION [None]
